FAERS Safety Report 24021005 (Version 2)
Quarter: 2024Q3

REPORT INFORMATION
  Report Type: Other
  Country: JP (occurrence: JP)
  Receive Date: 20240627
  Receipt Date: 20240805
  Transmission Date: 20241016
  Serious: Yes (Life-Threatening, Hospitalization, Other)
  Sender: EMD SERONO INC
  Company Number: JP-Merck Healthcare KGaA-2024034052

PATIENT
  Age: 8 Decade
  Sex: Female

DRUGS (1)
  1. METGLUCO [Suspect]
     Active Substance: METFORMIN HYDROCHLORIDE
     Indication: Type 2 diabetes mellitus
     Route: 048

REACTIONS (7)
  - Hypoglycaemia [Unknown]
  - Acute kidney injury [Unknown]
  - Circulatory collapse [Unknown]
  - Hepatic function abnormal [Recovering/Resolving]
  - Lactic acidosis [Recovering/Resolving]
  - Altered state of consciousness [Unknown]
  - Gastroenteritis [Unknown]
